FAERS Safety Report 4929669-X (Version None)
Quarter: 2006Q1

REPORT INFORMATION
  Report Type: 
  Country: None (occurrence: None)
  Receive Date: 20060224
  Receipt Date: 20060215
  Transmission Date: 20060701
  Serious: Yes (Hospitalization)
  Sender: FDA-Public Use
  Company Number: Q06-009

PATIENT
  Sex: Male
  Weight: 79 kg

DRUGS (10)
  1. TAXOTERE [Suspect]
     Indication: PROSTATE CANCER
     Dosage: 70 MG/M2 Q3W
     Dates: start: 20060127
  2. SAMARIUM [Suspect]
     Dosage: 0.5 MCI/KG Q6W
     Dates: start: 20060126
  3. M.V.I. [Concomitant]
  4. VITAMIN E [Concomitant]
  5. ASPIRIN [Concomitant]
  6. OSCAL [Concomitant]
  7. IBUPROFEN [Concomitant]
  8. AVALIDE [Concomitant]
  9. PREDNISONE [Concomitant]
  10. DECADRON SRC [Concomitant]

REACTIONS (3)
  - CEREBRAL HAEMORRHAGE [None]
  - CEREBROVASCULAR ACCIDENT [None]
  - VISUAL DISTURBANCE [None]
